FAERS Safety Report 10785430 (Version 1)
Quarter: 2015Q1

REPORT INFORMATION
  Report Type: Spontaneous
  Country: GB (occurrence: GB)
  Receive Date: 20150211
  Receipt Date: 20150211
  Transmission Date: 20150721
  Serious: Yes (Hospitalization, Other)
  Sender: FDA-Public Use
  Company Number: GB-PFIZER INC-2015048361

PATIENT
  Sex: Female

DRUGS (5)
  1. RIFABUTIN. [Suspect]
     Active Substance: RIFABUTIN
     Dosage: UNK
     Dates: start: 201406, end: 201407
  2. CLARITHROMYCIN. [Suspect]
     Active Substance: CLARITHROMYCIN
     Dosage: UNK
     Dates: start: 201406, end: 201407
  3. PREDNISOLONE. [Concomitant]
     Active Substance: PREDNISOLONE
     Dosage: 20 MG, UNK
  4. VENLAFAXINE HYDROCLORIDE [Concomitant]
     Indication: DEPRESSION
     Dosage: 150 MG, TAKEN FOR AROUND 7-8 YEARS
  5. ZOPICLONE [Concomitant]
     Active Substance: ZOPICLONE
     Indication: SLEEP DISORDER
     Dosage: 3.75 MG, 1X/DAY AT NIGHT

REACTIONS (6)
  - Malaise [Unknown]
  - Ocular icterus [Unknown]
  - Vomiting [Unknown]
  - Arthralgia [Unknown]
  - Dyspnoea [Unknown]
  - Drug-induced liver injury [Unknown]

NARRATIVE: CASE EVENT DATE: 201407
